FAERS Safety Report 10566180 (Version 1)
Quarter: 2014Q4

REPORT INFORMATION
  Report Type: Spontaneous
  Country: DE (occurrence: DE)
  Receive Date: 20141105
  Receipt Date: 20141105
  Transmission Date: 20150529
  Serious: Yes (Other)
  Sender: FDA-Public Use
  Company Number: DE-PFIZER INC-2014303473

PATIENT

DRUGS (5)
  1. TILIDINE [Concomitant]
     Active Substance: TILIDINE
     Indication: INSOMNIA
     Dosage: AT NIGHT
  2. CORTISONE [Concomitant]
     Active Substance: CORTISONE\HYDROCORTISONE
  3. LYRICA [Suspect]
     Active Substance: PREGABALIN
     Dosage: UNK
  4. NOVALGIN [Concomitant]
     Active Substance: METAMIZOLE SODIUM
     Indication: INSOMNIA
     Dosage: AT NIGHT
  5. QUENSYL [Concomitant]
     Active Substance: HYDROXYCHLOROQUINE

REACTIONS (10)
  - Fibromyalgia [Unknown]
  - Somnolence [Unknown]
  - CREST syndrome [Unknown]
  - Sjogren^s syndrome [Unknown]
  - Fatigue [Unknown]
  - Mobility decreased [Unknown]
  - Collagen disorder [Unknown]
  - Skin disorder [Unknown]
  - Chest pain [Unknown]
  - Musculoskeletal chest pain [Unknown]
